FAERS Safety Report 8305847-7 (Version None)
Quarter: 2012Q2

REPORT INFORMATION
  Report Type: 
  Country: None (occurrence: None)
  Receive Date: 20120423
  Receipt Date: 20120416
  Transmission Date: 20120825
  Serious: Yes (Hospitalization)
  Sender: FDA-Public Use
  Company Number: JP-JNJFOC-20120409216

PATIENT

DRUGS (3)
  1. USTEKINUMAB [Suspect]
     Indication: PSORIASIS
     Route: 058
     Dates: start: 20111101
  2. USTEKINUMAB [Suspect]
     Route: 058
     Dates: start: 20120221
  3. USTEKINUMAB [Suspect]
     Route: 058
     Dates: start: 20111129

REACTIONS (1)
  - NECK INJURY [None]
